FAERS Safety Report 22254816 (Version 9)
Quarter: 2023Q4

REPORT INFORMATION
  Report Type: Report from Study
  Country: US (occurrence: None)
  Receive Date: 20230426
  Receipt Date: 20231201
  Transmission Date: 20240110
  Serious: Yes (Other)
  Sender: FDA-Public Use
  Company Number: US-ROCHE-3335568

PATIENT
  Age: 58 Year
  Sex: Male
  Weight: 93 kg

DRUGS (20)
  1. RANIBIZUMAB [Suspect]
     Active Substance: RANIBIZUMAB
     Indication: Diabetic retinal oedema
     Dosage: DOSE OF STUDY DRUG FIRST ADMINISTERED: 10 MG/ML FOR EVERY 24 WEEKS
     Route: 050
     Dates: start: 20200915
  2. RANIBIZUMAB [Suspect]
     Active Substance: RANIBIZUMAB
     Indication: Diabetic retinal oedema
  3. RANIBIZUMAB [Suspect]
     Active Substance: RANIBIZUMAB
     Indication: Diabetic retinal oedema
  4. RANIBIZUMAB [Suspect]
     Active Substance: RANIBIZUMAB
     Indication: Diabetic retinal oedema
  5. RANIBIZUMAB [Suspect]
     Active Substance: RANIBIZUMAB
     Indication: Diabetic retinal oedema
  6. RANIBIZUMAB [Suspect]
     Active Substance: RANIBIZUMAB
     Dosage: DOSE LAST STUDY DRUG ADMIN PRIOR AE/SAE : 100 MG/ML?START DATE OF MOST RECENT DOSE OF STUDY DRUG PRI
     Route: 050
  7. RANIBIZUMAB [Suspect]
     Active Substance: RANIBIZUMAB
     Indication: Diabetic retinal oedema
  8. RANIBIZUMAB [Suspect]
     Active Substance: RANIBIZUMAB
     Indication: Diabetic retinal oedema
  9. RANIBIZUMAB [Suspect]
     Active Substance: RANIBIZUMAB
     Indication: Diabetic retinal oedema
  10. RANIBIZUMAB [Suspect]
     Active Substance: RANIBIZUMAB
     Indication: Diabetic retinal oedema
  11. RANIBIZUMAB [Concomitant]
     Active Substance: RANIBIZUMAB
     Dosage: DOSE- 6 MG/ML?DOSE LAST STUDY DRUG ADMIN PRIOR AE-6 MG/ML?START DATE OF MOST RECENT DOSE OF STUDY DR
     Route: 050
     Dates: start: 20200915
  12. RANIBIZUMAB [Concomitant]
     Active Substance: RANIBIZUMAB
     Dosage: DOSE- 10 MG/ML
     Route: 050
     Dates: start: 20200414
  13. RANIBIZUMAB [Concomitant]
     Active Substance: RANIBIZUMAB
     Route: 050
     Dates: start: 20230619, end: 20230619
  14. RANIBIZUMAB [Concomitant]
     Active Substance: RANIBIZUMAB
     Dosage: DOSE: 10 MG/ML
     Route: 050
     Dates: start: 20231128, end: 20231128
  15. ATORVASTATIN [Concomitant]
     Active Substance: ATORVASTATIN
     Indication: Blood cholesterol increased
     Dosage: 20 MG/ML
     Route: 048
     Dates: start: 1993
  16. GLIPIZIDE [Concomitant]
     Active Substance: GLIPIZIDE
     Indication: Type 2 diabetes mellitus
     Route: 048
     Dates: start: 2003
  17. LANTUS SOLOSTAR [Concomitant]
     Active Substance: INSULIN GLARGINE
     Dosage: DOSE- 100 U
     Route: 058
     Dates: start: 2003
  18. LISINOPRIL [Concomitant]
     Active Substance: LISINOPRIL
     Dosage: 40 MG/ML
     Route: 048
     Dates: start: 1993
  19. AMLODIPINE [Concomitant]
     Active Substance: AMLODIPINE BESYLATE
     Dosage: DOSE- 5 MG/ML
     Route: 048
     Dates: start: 20220502
  20. OFLOXACIN [Concomitant]
     Active Substance: OFLOXACIN
     Dosage: DOSE- 0.3 %
     Route: 047
     Dates: start: 20230417, end: 20230421

REACTIONS (2)
  - Device issue [Unknown]
  - No adverse event [Unknown]

NARRATIVE: CASE EVENT DATE: 20230418
